FAERS Safety Report 8303938-8 (Version None)
Quarter: 2012Q2

REPORT INFORMATION
  Report Type: 
  Country: None (occurrence: None)
  Receive Date: 20120418
  Receipt Date: 20120328
  Transmission Date: 20120825
  Serious: Yes (Death, Hospitalization)
  Sender: FDA-Public Use
  Company Number: 2012PROUSA01164

PATIENT
  Age: 73 Year
  Sex: Male
  Weight: 78.9 kg

DRUGS (13)
  1. PROVENGE [Suspect]
     Dosage: 250 ML, SINGLE, INTRAVENOUS
     Route: 042
     Dates: start: 20120131, end: 20120131
  2. VICODIN [Concomitant]
  3. NEXIUM [Concomitant]
  4. LIPITOR [Concomitant]
  5. EFFIENT (PRASUGREL HYDROCHLORIDE) [Concomitant]
  6. ASPIRIN [Concomitant]
  7. METFORMIN HCL [Concomitant]
  8. VOLTAREN [Concomitant]
  9. COREG [Concomitant]
  10. PROVENGE [Suspect]
     Indication: PROSTATE CANCER METASTATIC
     Dosage: 250 ML, SINGLE, INTRAVENOUS
     Route: 042
     Dates: start: 20111223, end: 20111223
  11. LISINOPRIL [Concomitant]
  12. DIGOXIN [Concomitant]
  13. PROVENGE [Suspect]
     Dosage: 250 ML, SINGLE, INTRAVENOUS
     Route: 042
     Dates: start: 20120127, end: 20120127

REACTIONS (2)
  - PROSTATE CANCER METASTATIC [None]
  - NEOPLASM PROGRESSION [None]
